FAERS Safety Report 19221729 (Version 1)
Quarter: 2021Q2

REPORT INFORMATION
  Report Type: Spontaneous
  Country: FR (occurrence: FR)
  Receive Date: 20210506
  Receipt Date: 20210506
  Transmission Date: 20210717
  Serious: Yes (Other)
  Sender: FDA-Public Use
  Company Number: FR-SUN PHARMACEUTICAL INDUSTRIES LTD-2021RR-294911

PATIENT
  Age: 73 Year
  Sex: Male
  Weight: 74 kg

DRUGS (3)
  1. ESOMEPRAZOLE. [Suspect]
     Active Substance: ESOMEPRAZOLE MAGNESIUM
     Indication: PROPHYLAXIS AGAINST GASTROINTESTINAL ULCER
     Dosage: 40 MILLIGRAM, DAILY
     Route: 048
     Dates: start: 20210205, end: 20210227
  2. KLIPAL [Suspect]
     Active Substance: ACETAMINOPHEN\CODEINE PHOSPHATE
     Indication: BACK PAIN
     Dosage: 1200 MILLIGRAM, DAILY
     Route: 048
     Dates: start: 20210205, end: 20210227
  3. LUMIRELAX (METHOCARBAMOL) [Suspect]
     Active Substance: METHOCARBAMOL
     Indication: ANXIETY
     Dosage: UNK
     Route: 048

REACTIONS (1)
  - Hallucination, auditory [Recovering/Resolving]

NARRATIVE: CASE EVENT DATE: 20210224
